FAERS Safety Report 11424083 (Version 1)
Quarter: 2015Q3

REPORT INFORMATION
  Report Type: Spontaneous
  Country: CA (occurrence: CA)
  Receive Date: 20150827
  Receipt Date: 20150827
  Transmission Date: 20151125
  Serious: Yes (Other)
  Sender: FDA-Public Use
  Company Number: CA-TEVA-588409USA

PATIENT
  Sex: Female

DRUGS (1)
  1. TEVA-FENTANYL [Suspect]
     Active Substance: FENTANYL
     Indication: PAIN
     Dosage: 600 MICROGRAM DAILY; 25 MCG/HR
     Route: 062

REACTIONS (4)
  - Pain [Unknown]
  - Hyperhidrosis [Unknown]
  - Insomnia [Unknown]
  - Abasia [Unknown]
